FAERS Safety Report 8918576 (Version 2)
Quarter: 2016Q4

REPORT INFORMATION
  Report Type: Spontaneous
  Country: US (occurrence: US)
  Receive Date: 20121120
  Receipt Date: 20161207
  Transmission Date: 20170207
  Serious: No
  Sender: FDA-Public Use
  Company Number: US-ASTRAZENECA-2012SE19220

PATIENT
  Age: 50 Year
  Sex: Female

DRUGS (1)
  1. NEXIUM [Suspect]
     Active Substance: ESOMEPRAZOLE MAGNESIUM
     Dosage: 40.0MG UNKNOWN
     Route: 048

REACTIONS (6)
  - Abasia [Unknown]
  - Intentional product use issue [Unknown]
  - Arthritis [Unknown]
  - Dyspepsia [Unknown]
  - Cartilage injury [Unknown]
  - Arthralgia [Unknown]
